FAERS Safety Report 9787801 (Version 1)
Quarter: 2013Q4

REPORT INFORMATION
  Report Type: Spontaneous
  Country: US (occurrence: US)
  Receive Date: 20131230
  Receipt Date: 20131230
  Transmission Date: 20140711
  Serious: Yes (Other)
  Sender: FDA-Public Use
  Company Number: US-PFIZER INC-2013367993

PATIENT
  Sex: Female

DRUGS (2)
  1. GLIPIZIDE [Suspect]
     Dosage: 10MG TWO PILLS ONCE A DAY
  2. METFORMIN HCL [Suspect]
     Dosage: 2000 MG, ONCE A DAY

REACTIONS (1)
  - Blood glucose decreased [Unknown]
